FAERS Safety Report 17205657 (Version 1)
Quarter: 2019Q4

REPORT INFORMATION
  Report Type: Spontaneous
  Country: US (occurrence: US)
  Receive Date: 20191204
  Receipt Date: 20191204
  Transmission Date: 20200122
  Serious: Yes (Hospitalization)
  Sender: FDA-Public Use
  Company Number: None

PATIENT
  Age: 76 Year
  Sex: Female

DRUGS (22)
  1. ALBUTEROL. [Concomitant]
     Active Substance: ALBUTEROL
  2. LIDOCAINE. [Concomitant]
     Active Substance: LIDOCAINE
  3. PREDNISONE. [Concomitant]
     Active Substance: PREDNISONE
  4. CARB/LEVO ER [Concomitant]
  5. NEUPRO DIS [Concomitant]
  6. PREGABALIN. [Concomitant]
     Active Substance: PREGABALIN
  7. FUROSEMIDE. [Concomitant]
     Active Substance: FUROSEMIDE
  8. OMEPRAZOLE. [Concomitant]
     Active Substance: OMEPRAZOLE
  9. ACTEMRA [Suspect]
     Active Substance: TOCILIZUMAB
     Indication: RHEUMATOID ARTHRITIS
     Route: 058
     Dates: start: 20150326
  10. LEVOTHYROXIN [Concomitant]
     Active Substance: LEVOTHYROXINE
  11. METOPROL SUC [Concomitant]
  12. PROLIA [Concomitant]
     Active Substance: DENOSUMAB
  13. RASAGILINE. [Concomitant]
     Active Substance: RASAGILINE
  14. RESTASIS [Concomitant]
     Active Substance: CYCLOSPORINE
  15. CARB/LEVO [Concomitant]
     Active Substance: CARBIDOPA\LEVODOPA
  16. MYRBETRIQ [Concomitant]
     Active Substance: MIRABEGRON
  17. SPIRONOLACT [Concomitant]
     Active Substance: SPIRONOLACTONE
  18. LYRICA [Concomitant]
     Active Substance: PREGABALIN
  19. DICLOFENAC [Concomitant]
     Active Substance: DICLOFENAC
  20. LUMIGAN [Concomitant]
     Active Substance: BIMATOPROST
  21. METHOTREXATE. [Concomitant]
     Active Substance: METHOTREXATE
  22. VIOS MIS SYSTEM [Concomitant]

REACTIONS (2)
  - Infection [None]
  - Bronchitis [None]

NARRATIVE: CASE EVENT DATE: 20191118
